FAERS Safety Report 8973763 (Version 1)
Quarter: 2012Q4

REPORT INFORMATION
  Report Type: 
  Country: US (occurrence: US)
  Receive Date: 20121218
  Receipt Date: 20121218
  Transmission Date: 20130627
  Serious: No
  Sender: FDA-Public Use
  Company Number: US-BRISTOL-MYERS SQUIBB COMPANY-16410227

PATIENT
  Sex: Female

DRUGS (3)
  1. ABILIFY [Suspect]
     Indication: DEPRESSION
     Dosage: dose was titrated up to 2.5mg
take off then restarted
  2. PROVIGIL [Suspect]
     Indication: DEPRESSION
  3. CYMBALTA [Suspect]
     Indication: DEPRESSION

REACTIONS (2)
  - Extrapyramidal disorder [Unknown]
  - Weight increased [Unknown]
